FAERS Safety Report 12724743 (Version 1)
Quarter: 2016Q3

REPORT INFORMATION
  Report Type: Spontaneous
  Country: MX (occurrence: MX)
  Receive Date: 20160908
  Receipt Date: 20160908
  Transmission Date: 20161109
  Serious: Yes (Other)
  Sender: FDA-Public Use
  Company Number: MX-SA-2016SA161594

PATIENT
  Age: 55 Year
  Sex: Female
  Weight: 75 kg

DRUGS (7)
  1. GLUCOVANCE [Concomitant]
     Active Substance: GLYBURIDE\METFORMIN HYDROCHLORIDE
     Route: 048
     Dates: end: 2012
  2. LANTUS SOLOSTAR [Suspect]
     Active Substance: INSULIN GLARGINE
     Indication: DIABETES MELLITUS
     Route: 058
     Dates: start: 2012, end: 2013
  3. LANTUS SOLOSTAR [Suspect]
     Active Substance: INSULIN GLARGINE
     Indication: DIABETES MELLITUS
     Route: 058
     Dates: start: 2013, end: 2013
  4. SOLOSTAR [Concomitant]
     Active Substance: DEVICE
     Indication: DIABETES MELLITUS
     Route: 058
     Dates: start: 2013, end: 2013
  5. SOLOSTAR [Concomitant]
     Active Substance: DEVICE
     Indication: DIABETES MELLITUS
     Route: 058
     Dates: start: 2013, end: 2015
  6. LANTUS SOLOSTAR [Suspect]
     Active Substance: INSULIN GLARGINE
     Indication: DIABETES MELLITUS
     Route: 058
     Dates: start: 2013, end: 2015
  7. SOLOSTAR [Concomitant]
     Active Substance: DEVICE
     Indication: DIABETES MELLITUS
     Route: 058
     Dates: start: 2012, end: 2013

REACTIONS (3)
  - Dialysis [Unknown]
  - Hypoglycaemia [Recovered/Resolved]
  - Hyperglycaemia [Not Recovered/Not Resolved]

NARRATIVE: CASE EVENT DATE: 2013
